FAERS Safety Report 14059811 (Version 1)
Quarter: 2017Q4

REPORT INFORMATION
  Report Type: Report from Study
  Country: US (occurrence: US)
  Receive Date: 20171006
  Receipt Date: 20171006
  Transmission Date: 20180321
  Serious: No
  Sender: FDA-Public Use
  Company Number: US-AMGEN-USASL2017038718

PATIENT
  Age: 83 Year
  Sex: Female
  Weight: 60.6 kg

DRUGS (5)
  1. PROLIA [Suspect]
     Active Substance: DENOSUMAB
     Indication: GENERALISED ANXIETY DISORDER
  2. PROLIA [Suspect]
     Active Substance: DENOSUMAB
     Indication: OSTEOPOROSIS
     Dosage: UNK
     Route: 065
  3. PROLIA [Suspect]
     Active Substance: DENOSUMAB
     Indication: GOUT
  4. PROLIA [Suspect]
     Active Substance: DENOSUMAB
     Indication: HYPOTHYROIDISM
  5. PROLIA [Suspect]
     Active Substance: DENOSUMAB
     Indication: INSOMNIA

REACTIONS (2)
  - Essential hypertension [Unknown]
  - Off label use [Unknown]

NARRATIVE: CASE EVENT DATE: 20170302
